FAERS Safety Report 19651272 (Version 1)
Quarter: 2021Q3

REPORT INFORMATION
  Report Type: Spontaneous
  Country: US (occurrence: US)
  Receive Date: 20210731
  Receipt Date: 20210731
  Transmission Date: 20211014
  Serious: Yes (Death)
  Sender: FDA-Public Use
  Company Number: None

PATIENT
  Age: 77 Year
  Sex: Male
  Weight: 117.5 kg

DRUGS (1)
  1. GADOBUTROL. [Suspect]
     Active Substance: GADOBUTROL
     Dates: end: 20180206

REACTIONS (1)
  - Death [None]

NARRATIVE: CASE EVENT DATE: 20180613
